FAERS Safety Report 23599299 (Version 1)
Quarter: 2024Q1

REPORT INFORMATION
  Report Type: Spontaneous
  Country: US (occurrence: US)
  Receive Date: 20240306
  Receipt Date: 20240306
  Transmission Date: 20240409
  Serious: Yes (Other)
  Sender: FDA-Public Use
  Company Number: US-JNJFOC-20240306694

PATIENT
  Age: 6 Decade
  Sex: Female

DRUGS (2)
  1. ELMIRON [Suspect]
     Active Substance: PENTOSAN POLYSULFATE SODIUM
     Indication: Cystitis interstitial
     Dosage: VARYING DOSES OF 100 MG AND 200 MG WITH VARYING FREQUENCY OF TWICE AND THRICE DAILY
     Route: 048
  2. ELMIRON [Suspect]
     Active Substance: PENTOSAN POLYSULFATE SODIUM
     Indication: Crohn^s disease

REACTIONS (2)
  - Maculopathy [Unknown]
  - Off label use [Unknown]

NARRATIVE: CASE EVENT DATE: 20220101
